FAERS Safety Report 12159185 (Version 3)
Quarter: 2016Q1

REPORT INFORMATION
  Report Type: Spontaneous
  Country: CM (occurrence: CM)
  Receive Date: 20160308
  Receipt Date: 20160317
  Transmission Date: 20160526
  Serious: Yes (Disabling)
  Sender: FDA-Public Use
  Company Number: PHHY2016CM030381

PATIENT
  Sex: Male

DRUGS (1)
  1. ZOMETA [Suspect]
     Active Substance: ZOLEDRONIC ACID
     Indication: PROSTATE CANCER
     Route: 065

REACTIONS (7)
  - Nerve compression [Not Recovered/Not Resolved]
  - Limb discomfort [Unknown]
  - Erectile dysfunction [Unknown]
  - Pain [Not Recovered/Not Resolved]
  - Pain in extremity [Unknown]
  - Muscular weakness [Unknown]
  - Gait disturbance [Not Recovered/Not Resolved]
